FAERS Safety Report 23134299 (Version 2)
Quarter: 2024Q2

REPORT INFORMATION
  Report Type: Report from Study
  Country: DE (occurrence: DE)
  Receive Date: 20231101
  Receipt Date: 20240412
  Transmission Date: 20240716
  Serious: Yes (Hospitalization)
  Sender: FDA-Public Use
  Company Number: DE-ABBVIE-5474197

PATIENT
  Age: 69 Year
  Sex: Female

DRUGS (3)
  1. RINVOQ [Suspect]
     Active Substance: UPADACITINIB
     Indication: Rheumatoid arthritis
     Route: 048
     Dates: start: 20220524, end: 20230531
  2. ETANERCEPT [Concomitant]
     Active Substance: ETANERCEPT
     Indication: Product used for unknown indication
     Dosage: FORM STRENGTH: 50 MILLIGRAMS
     Dates: start: 20230531
  3. ETANERCEPT [Concomitant]
     Active Substance: ETANERCEPT
     Indication: Product used for unknown indication
     Dosage: FORM STRENGTH: 50 MILLIGRAMS
     Dates: start: 201802, end: 201904

REACTIONS (4)
  - Transient ischaemic attack [Unknown]
  - Hemiparesis [Unknown]
  - Dysmetria [Unknown]
  - Visual impairment [Unknown]

NARRATIVE: CASE EVENT DATE: 20230401
